FAERS Safety Report 8912991 (Version 1)
Quarter: 2012Q4

REPORT INFORMATION
  Report Type: Spontaneous
  Country: US (occurrence: None)
  Receive Date: 20121114
  Receipt Date: 20121114
  Transmission Date: 20130627
  Serious: Yes (Hospitalization)
  Sender: FDA-Public Use
  Company Number: None

PATIENT
  Age: 15 Year
  Sex: Female
  Weight: 68.04 kg

DRUGS (2)
  1. LORYNA [Suspect]
     Indication: PREMENSTRUAL SYNDROME
     Dates: start: 20111105, end: 20120913
  2. LORYNA [Suspect]
     Indication: BIRTH CONTROL
     Dates: start: 20111105, end: 20120913

REACTIONS (1)
  - Cholelithiasis [None]
